FAERS Safety Report 20871220 (Version 1)
Quarter: 2022Q2

REPORT INFORMATION
  Report Type: Spontaneous
  Country: US (occurrence: None)
  Receive Date: 20220524
  Receipt Date: 20220524
  Transmission Date: 20220720
  Serious: No
  Sender: FDA-Public Use
  Company Number: None

PATIENT

DRUGS (1)
  1. PRISMASOL BGK4/2.5 [Suspect]
     Active Substance: ANHYDROUS DEXTROSE\CALCIUM CHLORIDE\LACTIC ACID\MAGNESIUM CHLORIDE\POTASSIUM CHLORIDE\SODIUM BICARBO
     Dosage: OTHER STRENGTH : 4K MEQ/L AND 2.5CA;?
     Route: 042

REACTIONS (6)
  - Wrong product stored [None]
  - Product selection error [None]
  - Wrong product administered [None]
  - Product label confusion [None]
  - Product name confusion [None]
  - Product packaging confusion [None]
